FAERS Safety Report 11008526 (Version 1)
Quarter: 2015Q2

REPORT INFORMATION
  Report Type: Spontaneous
  Country: US (occurrence: None)
  Receive Date: 20150408
  Receipt Date: 20150408
  Transmission Date: 20150821
  Serious: Yes (Hospitalization, Other)
  Sender: FDA-Public Use
  Company Number: ADR-2015-00557

PATIENT
  Age: 15 Year
  Sex: Female

DRUGS (1)
  1. COMPOUNDED BACLOFEN INTRATHECAL 4,000MCG/ML [Suspect]
     Active Substance: BACLOFEN
     Indication: CEREBRAL PALSY

REACTIONS (3)
  - Agitation [None]
  - Medical device complication [None]
  - Dystonia [None]
